FAERS Safety Report 5585643-4 (Version None)
Quarter: 2007Q4

REPORT INFORMATION
  Report Type: 
  Country: None (occurrence: None)
  Receive Date: 20071203
  Receipt Date: 20061017
  Transmission Date: 20080405
  Serious: Yes (Hospitalization, Other)
  Sender: FDA-Public Use
  Company Number: 2006077389

PATIENT
  Age: 44 Year
  Sex: Female
  Weight: 46 kg

DRUGS (14)
  1. ZYVOX [Suspect]
     Indication: SEPSIS
     Dosage: 1200 MG (600 MG,2 IN 1 D),ORAL
     Route: 048
     Dates: start: 20060601
  2. AZULFIDINE [Concomitant]
  3. PENTASA [Concomitant]
  4. PREDNISONE TAB [Concomitant]
  5. ALL OTHER THERAPEUTIC PRODUCTS (ALL OTHER THERAPEUTIC PRODUCTS) [Concomitant]
  6. DARVOCET-N 100 [Concomitant]
  7. VICODIN [Concomitant]
  8. MIRALAX [Concomitant]
  9. ZELNORM [Concomitant]
  10. DULCOLAX [Concomitant]
  11. LAMICTAL [Concomitant]
  12. XANAX [Concomitant]
  13. POTASSIUM CHLORIDE [Concomitant]
  14. IRON (IRON) [Concomitant]

REACTIONS (1)
  - GENERALISED OEDEMA [None]
